FAERS Safety Report 9684035 (Version 1)
Quarter: 2013Q4

REPORT INFORMATION
  Report Type: Spontaneous
  Country: US (occurrence: US)
  Receive Date: 20131112
  Receipt Date: 20131112
  Transmission Date: 20140711
  Serious: No
  Sender: FDA-Public Use
  Company Number: US-ENDO PHARMACEUTICALS INC.-HCTZ20120015

PATIENT
  Sex: Female
  Weight: 68.1 kg

DRUGS (3)
  1. HYDROCHLOROTHIAZIDE TABLETS 25MG [Suspect]
     Indication: HYPERTENSION
     Route: 048
     Dates: start: 20120914, end: 20121112
  2. DILTIAZEM [Suspect]
     Indication: HYPERTENSION
     Route: 048
     Dates: start: 20120320, end: 20121112
  3. SYNTHROID [Concomitant]
     Indication: THYROID THERAPY
     Dosage: UNKNOWN
     Route: 065
     Dates: start: 1971

REACTIONS (8)
  - Eye disorder [Not Recovered/Not Resolved]
  - Dry eye [Unknown]
  - Nocturia [Unknown]
  - Flank pain [Unknown]
  - Dry skin [Unknown]
  - Dry mouth [Recovering/Resolving]
  - Thirst [Recovering/Resolving]
  - Micturition frequency decreased [Unknown]
